FAERS Safety Report 12800383 (Version 1)
Quarter: 2016Q3

REPORT INFORMATION
  Report Type: Spontaneous
  Country: US (occurrence: US)
  Receive Date: 20160930
  Receipt Date: 20160930
  Transmission Date: 20161109
  Serious: No
  Sender: FDA-Public Use
  Company Number: US-009507513-1609USA010850

PATIENT
  Age: 2 Month
  Sex: Male

DRUGS (8)
  1. OXYGEN. [Concomitant]
     Active Substance: OXYGEN
     Dosage: VIA NASAL CANNULA
     Route: 055
  2. HEXADROL [Suspect]
     Active Substance: DEXAMETHASONE
     Indication: HISTIOCYTOSIS HAEMATOPHAGIC
     Route: 048
  3. PROVENTIL [Suspect]
     Active Substance: ALBUTEROL
     Indication: PNEUMONIA RESPIRATORY SYNCYTIAL VIRAL
  4. BLOOD CELLS, RED [Concomitant]
     Active Substance: HUMAN BLOOD CELLS
  5. METHOTREXATE. [Concomitant]
     Active Substance: METHOTREXATE
     Route: 037
  6. BLOOD, PLASMA [Concomitant]
     Active Substance: HUMAN PLASMA
  7. ETOPOSIDE. [Concomitant]
     Active Substance: ETOPOSIDE
  8. PLATELETS [Concomitant]
     Active Substance: HUMAN PLATELET, ALLOGENIC

REACTIONS (1)
  - Product use issue [Unknown]
